FAERS Safety Report 9525852 (Version 1)
Quarter: 2013Q3

REPORT INFORMATION
  Report Type: Spontaneous
  Country: US (occurrence: US)
  Receive Date: 20130915
  Receipt Date: 20130915
  Transmission Date: 20140515
  Serious: Yes (Death, Hospitalization, Other)
  Sender: FDA-Public Use
  Company Number: US-PFIZER INC-2013260099

PATIENT
  Age: 46 Year
  Sex: Female

DRUGS (4)
  1. REVATIO [Suspect]
     Indication: PRODUCT USED FOR UNKNOWN INDICATION
     Dosage: UNK
  2. FLOLAN [Suspect]
     Indication: COR PULMONALE CHRONIC
     Dosage: 46 NG/KG/MIN/CONTINUOUS
     Route: 042
     Dates: start: 20120406
  3. FLOLAN [Suspect]
  4. COUMADIN [Concomitant]
     Dosage: UNK

REACTIONS (7)
  - Death [Fatal]
  - Pneumonia [Unknown]
  - Bone pain [Unknown]
  - Hypotension [Unknown]
  - Asthenia [Unknown]
  - Hyperhidrosis [Unknown]
  - Hypertension [Unknown]
